FAERS Safety Report 11193721 (Version 1)
Quarter: 2015Q2

REPORT INFORMATION
  Report Type: Spontaneous
  Country: US (occurrence: US)
  Receive Date: 20150616
  Receipt Date: 20150616
  Transmission Date: 20150821
  Serious: Yes (Other)
  Sender: FDA-Public Use
  Company Number: US-TEVA-570932USA

PATIENT
  Sex: Male

DRUGS (1)
  1. COPAXONE [Suspect]
     Active Substance: GLATIRAMER ACETATE
     Indication: MULTIPLE SCLEROSIS
     Dates: start: 2004

REACTIONS (4)
  - Corneal transplant [Unknown]
  - Corneal dystrophy [Unknown]
  - Vision blurred [Unknown]
  - Psoriasis [Unknown]

NARRATIVE: CASE EVENT DATE: 2013
